FAERS Safety Report 11678684 (Version 2)
Quarter: 2016Q1

REPORT INFORMATION
  Report Type: Spontaneous
  Country: US (occurrence: US)
  Receive Date: 20151028
  Receipt Date: 20160202
  Transmission Date: 20160525
  Serious: No
  Sender: FDA-Public Use
  Company Number: US-IMPAX LABORATORIES, INC-2015-IPXL-00838

PATIENT
  Age: 62 Year
  Sex: Male
  Weight: 95.24 kg

DRUGS (11)
  1. RYTARY [Suspect]
     Active Substance: CARBIDOPA\LEVODOPA
     Dosage: (48.75/195MG) 2 CAPSULES, 4 TIMES A DAY
     Route: 048
     Dates: start: 201508
  2. OMEPRAZOLE. [Concomitant]
     Active Substance: OMEPRAZOLE
     Indication: GASTROOESOPHAGEAL REFLUX DISEASE
     Dosage: UNK
     Route: 065
  3. VASICARE [Concomitant]
     Indication: HYPERTONIC BLADDER
     Dosage: UNK
     Route: 065
  4. APOKYN [Concomitant]
     Active Substance: APOMORPHINE HYDROCHLORIDE
     Indication: PARKINSON^S DISEASE
     Dosage: UNK
     Route: 065
  5. RYTARY [Suspect]
     Active Substance: CARBIDOPA\LEVODOPA
     Indication: PARKINSON^S DISEASE
     Dosage: UNK
     Route: 048
     Dates: start: 201505
  6. RYTARY [Suspect]
     Active Substance: CARBIDOPA\LEVODOPA
     Dosage: (36.25/145MG) THREE CAPSULES THREE TIMES DAY
     Route: 048
     Dates: start: 201506
  7. RYTARY [Suspect]
     Active Substance: CARBIDOPA\LEVODOPA
     Dosage: (48.75/195MG) 3 CAPSULES, 4 TIMES A DAY
     Route: 048
     Dates: start: 201508
  8. TAMSULOSIN [Concomitant]
     Active Substance: TAMSULOSIN
     Indication: UROGENITAL DISORDER
     Dosage: UNK
     Route: 065
  9. REQUIP [Concomitant]
     Active Substance: ROPINIROLE HYDROCHLORIDE
     Indication: PARKINSON^S DISEASE
     Dosage: UNK
     Route: 065
  10. TIGAN [Concomitant]
     Active Substance: TRIMETHOBENZAMIDE HYDROCHLORIDE
     Indication: NAUSEA
     Dosage: UNK
     Route: 065
  11. AMANTADINE [Concomitant]
     Active Substance: AMANTADINE
     Indication: PARKINSON^S DISEASE
     Dosage: UNK
     Route: 065

REACTIONS (6)
  - Tremor [Unknown]
  - On and off phenomenon [Unknown]
  - Freezing phenomenon [Not Recovered/Not Resolved]
  - Muscle rigidity [Unknown]
  - Muscle tightness [Recovered/Resolved]
  - Drug effect variable [Unknown]

NARRATIVE: CASE EVENT DATE: 201506
